FAERS Safety Report 20920508 (Version 1)
Quarter: 2022Q2

REPORT INFORMATION
  Report Type: Spontaneous
  Country: US (occurrence: None)
  Receive Date: 20220606
  Receipt Date: 20220606
  Transmission Date: 20220720
  Serious: No
  Sender: FDA-Public Use
  Company Number: None

PATIENT
  Age: 56 Year
  Sex: Female
  Weight: 101.25 kg

DRUGS (17)
  1. PAXLOVID [Suspect]
     Active Substance: NIRMATRELVIR\RITONAVIR
     Indication: COVID-19
     Dates: start: 20220519, end: 20220523
  2. AMLODIPINE [Concomitant]
     Active Substance: AMLODIPINE BESYLATE
     Dates: end: 20220519
  3. ARMOUR THYROID [Concomitant]
     Active Substance: THYROID, PORCINE
  4. ATORVASTATIN CALCIUM [Concomitant]
     Active Substance: ATORVASTATIN CALCIUM
     Dates: end: 20220519
  5. Calcium 1200 [Concomitant]
  6. CELEBREX [Concomitant]
     Active Substance: CELECOXIB
  7. GABAPENTIN [Concomitant]
     Active Substance: GABAPENTIN
  8. Glucosamine 1500 Complex [Concomitant]
  9. Lithyroine Sodium [Concomitant]
  10. MAGNESIUM [Concomitant]
     Active Substance: MAGNESIUM
  11. METOPROLOL SUCCINATE [Concomitant]
     Active Substance: METOPROLOL SUCCINATE
  12. PROBIOTICS NOS [Concomitant]
     Active Substance: PROBIOTICS NOS
  13. Selenium ER [Concomitant]
  14. CYANOCOBALAMIN\DEXPANTHENOL\NIACINAMIDE\PYRIDOXINE HYDROCHLORIDE\RIBOF [Concomitant]
     Active Substance: CYANOCOBALAMIN\DEXPANTHENOL\NIACINAMIDE\PYRIDOXINE HYDROCHLORIDE\RIBOFLAVIN 5^-PHOSPHATE SODIUM\THIA
  15. VITAMIN D3 [Concomitant]
     Active Substance: CHOLECALCIFEROL
  16. VITAMIN E [Concomitant]
     Active Substance: .ALPHA.-TOCOPHEROL
  17. ZINC [Concomitant]
     Active Substance: ZINC

REACTIONS (2)
  - Symptom recurrence [None]
  - SARS-CoV-2 test positive [None]
